FAERS Safety Report 8033855-2 (Version None)
Quarter: 2012Q1

REPORT INFORMATION
  Report Type: 
  Country: None (occurrence: None)
  Receive Date: 20120110
  Receipt Date: 20120105
  Transmission Date: 20120608
  Serious: No
  Sender: FDA-Public Use
  Company Number: US-PFIZER INC-2012001201

PATIENT

DRUGS (1)
  1. LEVOXYL [Suspect]
     Dosage: 0.025 MG, UNK
     Dates: start: 20020101

REACTIONS (3)
  - PANIC ATTACK [None]
  - INSOMNIA [None]
  - ANXIETY [None]
